FAERS Safety Report 7685455-1 (Version None)
Quarter: 2011Q3

REPORT INFORMATION
  Report Type: 
  Country: None (occurrence: None)
  Receive Date: 20110815
  Receipt Date: 20110815
  Transmission Date: 20111222
  Serious: Yes (Other)
  Sender: FDA-Public Use
  Company Number: None

PATIENT
  Age: 46 Year
  Sex: Female
  Weight: 179.6244 kg

DRUGS (2)
  1. SULFAMETHOXAZOLE AND TRIMETHOPRIM [Suspect]
     Indication: STAPHYLOCOCCAL INFECTION
     Dosage: 1 TABLET BY MOUTH TWICE A DAY
     Route: 048
     Dates: start: 20110713, end: 20110725
  2. SULFAMETHOXAZOLE AND TRIMETHOPRIM [Suspect]
     Indication: ABSCESS
     Dosage: 1 TABLET BY MOUTH TWICE A DAY
     Route: 048
     Dates: start: 20110713, end: 20110725

REACTIONS (8)
  - JOINT STIFFNESS [None]
  - STOMATITIS [None]
  - RASH [None]
  - GASTRIC DISORDER [None]
  - PRURITUS [None]
  - ABDOMINAL PAIN UPPER [None]
  - BLISTER [None]
  - HAEMORRHAGE [None]
